FAERS Safety Report 24388476 (Version 1)
Quarter: 2024Q4

REPORT INFORMATION
  Report Type: Spontaneous
  Country: BE (occurrence: BE)
  Receive Date: 20241002
  Receipt Date: 20241002
  Transmission Date: 20250115
  Serious: Yes (Other)
  Sender: SAMSUNG BIOEPIS
  Company Number: BE-SAMSUNG BIOEPIS-SB-2024-28495

PATIENT
  Sex: Female

DRUGS (3)
  1. ADALIMUMAB [Suspect]
     Active Substance: ADALIMUMAB
     Indication: Inflammatory bowel disease
  2. ADALIMUMAB [Suspect]
     Active Substance: ADALIMUMAB
  3. CANAKINUMAB [Concomitant]
     Active Substance: CANAKINUMAB
     Indication: Interleukin therapy

REACTIONS (4)
  - Pneumonia [Unknown]
  - Candida infection [Unknown]
  - Vascular device infection [Unknown]
  - Off label use [Unknown]
